FAERS Safety Report 7348515-0 (Version None)
Quarter: 2011Q1

REPORT INFORMATION
  Report Type: 
  Country: None (occurrence: None)
  Receive Date: 20110314
  Receipt Date: 20110303
  Transmission Date: 20110831
  Serious: Yes (Other)
  Sender: FDA-Public Use
  Company Number: US-RB-022434-11

PATIENT
  Age: 63 Year
  Sex: Male

DRUGS (1)
  1. DELSYM [Suspect]
     Dosage: ONE DOSE AT 8PM
     Route: 048
     Dates: start: 20110302

REACTIONS (1)
  - HYPERTENSION [None]
